FAERS Safety Report 6211574-2 (Version None)
Quarter: 2009Q2

REPORT INFORMATION
  Report Type: 
  Country: None (occurrence: None)
  Receive Date: 20090522
  Receipt Date: 20090407
  Transmission Date: 20091009
  Serious: No
  Sender: FDA-Public Use
  Company Number: 8044654

PATIENT
  Age: 23 Year
  Sex: Female
  Weight: 84 kg

DRUGS (9)
  1. CIMZIA [Suspect]
     Indication: CROHN'S DISEASE
     Dosage: 40 MG SC
     Route: 058
     Dates: start: 20090323
  2. ZOLPIDEM TARTRATE [Concomitant]
  3. AZATHIOPRINE [Concomitant]
  4. PREDNISONE [Concomitant]
  5. METRONIDAZOLE [Concomitant]
  6. LOVAZA [Concomitant]
  7. MULTI-VITAMINS [Concomitant]
  8. PENTASA [Concomitant]
  9. OTC NAUSEA AND VOMITING MEDICATION [Concomitant]

REACTIONS (1)
  - URINARY TRACT INFECTION [None]
